FAERS Safety Report 15640954 (Version 1)
Quarter: 2018Q4

REPORT INFORMATION
  Report Type: Spontaneous
  Country: GB (occurrence: GB)
  Receive Date: 20181120
  Receipt Date: 20181120
  Transmission Date: 20190205
  Serious: Yes (Other)
  Sender: FDA-Public Use
  Company Number: GB-AUROBINDO-AUR-APL-2011-05611

PATIENT
  Sex: Male
  Weight: 92 kg

DRUGS (2)
  1. AMLODIPINE TABLETS 5MG [Suspect]
     Active Substance: AMLODIPINE BESYLATE
     Dosage: 10 MG,UNK,
     Route: 065
  2. AMLODIPINE TABLETS 5MG [Suspect]
     Active Substance: AMLODIPINE BESYLATE
     Indication: PRODUCT USED FOR UNKNOWN INDICATION
     Dosage: 5 MG,ONCE A DAY,
     Route: 065
     Dates: start: 20110713, end: 20110920

REACTIONS (1)
  - Skin ulcer [Not Recovered/Not Resolved]
